FAERS Safety Report 13869752 (Version 2)
Quarter: 2017Q3

REPORT INFORMATION
  Report Type: Spontaneous
  Country: US (occurrence: US)
  Receive Date: 20170815
  Receipt Date: 20170815
  Transmission Date: 20171127
  Serious: Yes (Other)
  Sender: FDA-Public Use
  Company Number: US-CELGENEUS-USA-20170800380

PATIENT
  Sex: Male

DRUGS (1)
  1. VIDAZA [Suspect]
     Active Substance: AZACITIDINE
     Indication: PRODUCT USED FOR UNKNOWN INDICATION
     Route: 065

REACTIONS (9)
  - Pyrexia [Unknown]
  - Basal cell carcinoma [Unknown]
  - Pruritus [Unknown]
  - Pain [Unknown]
  - Pigmentation disorder [Unknown]
  - Rash [Unknown]
  - Hypersensitivity [Unknown]
  - Platelet count decreased [Unknown]
  - Nausea [Unknown]
